FAERS Safety Report 10390214 (Version 2)
Quarter: 2014Q3

REPORT INFORMATION
  Report Type: Spontaneous
  Country: US (occurrence: None)
  Receive Date: 20140814
  Receipt Date: 20140827
  Transmission Date: 20150326
  Serious: Yes (Disabling)
  Sender: FDA-Public Use
  Company Number: AUR-APL-2014-08563

PATIENT
  Sex: Male
  Weight: 137 kg

DRUGS (7)
  1. VITAMIN B ( VITAMIN B COMPLEX) [Concomitant]
  2. LISINOPRIL. [Concomitant]
     Active Substance: LISINOPRIL
  3. CALCIUM + VITAMIN D ( CALCIUM CARBONATE, COLECALCIFEROL) [Concomitant]
  4. DICYCLOMINE ( DICYCLOVERINE) [Concomitant]
  5. ADVICOR ( LOVASTATIN, NICOTINIC ACID) [Concomitant]
  6. XARELTO ( RIVAROXABAN) [Concomitant]
  7. ALENDRONATE SODIUM. [Suspect]
     Active Substance: ALENDRONATE SODIUM
     Indication: BONE DENSITY DECREASED
     Route: 048

REACTIONS (7)
  - Myalgia [None]
  - Gait disturbance [None]
  - Bone pain [None]
  - Arthralgia [None]
  - Pain in extremity [None]
  - Condition aggravated [None]
  - Dysstasia [None]

NARRATIVE: CASE EVENT DATE: 2014
